FAERS Safety Report 9452623 (Version 1)
Quarter: 2013Q3

REPORT INFORMATION
  Report Type: Spontaneous
  Country: US (occurrence: US)
  Receive Date: 20130812
  Receipt Date: 20130812
  Transmission Date: 20140515
  Serious: No
  Sender: FDA-Public Use
  Company Number: US-PFIZER INC-2013233154

PATIENT
  Sex: Female

DRUGS (2)
  1. CHANTIX [Suspect]
     Indication: SMOKING CESSATION THERAPY
     Dosage: 0.5 MG, UNK
     Dates: start: 2013, end: 2013
  2. CHANTIX [Suspect]
     Dosage: 1 MG, UNK
     Dates: start: 2013

REACTIONS (2)
  - Nausea [Unknown]
  - Malaise [Unknown]
